FAERS Safety Report 4837563-8 (Version None)
Quarter: 2005Q4

REPORT INFORMATION
  Report Type: 
  Country: None (occurrence: None)
  Receive Date: 20051128
  Receipt Date: 20050913
  Transmission Date: 20060501
  Serious: Yes (Hospitalization)
  Sender: FDA-Public Use
  Company Number: FR-BRISTOL-MYERS SQUIBB COMPANY-13111315

PATIENT
  Age: 78 Year
  Sex: Female

DRUGS (10)
  1. COAPROVEL TABS 300MG/12.5MG [Suspect]
     Indication: ESSENTIAL HYPERTENSION
     Route: 048
     Dates: start: 20020501
  2. APROVEL TABS 300 MG [Suspect]
     Indication: ESSENTIAL HYPERTENSION
     Route: 048
  3. HUMALOG [Concomitant]
     Indication: DIABETES MELLITUS INSULIN-DEPENDENT
     Dosage: 6 UNITS BEFORE MEALS
     Route: 058
  4. KARDEGIC [Concomitant]
     Route: 048
  5. LANTUS [Concomitant]
     Indication: DIABETES MELLITUS INSULIN-DEPENDENT
     Dosage: 18 UNITS ONCE DAILY
     Route: 058
  6. LASILIX [Concomitant]
  7. LEVOTHYROX [Concomitant]
     Route: 048
  8. LOXEN [Concomitant]
     Route: 048
  9. MOPRAL [Concomitant]
     Route: 048
  10. SECTRAL [Concomitant]
     Dosage: INITIATED AT 100 MG BID
     Route: 048
     Dates: start: 20050201

REACTIONS (1)
  - AUTOIMMUNE HEPATITIS [None]
